FAERS Safety Report 7231869-3 (Version None)
Quarter: 2011Q1

REPORT INFORMATION
  Report Type: 
  Country: None (occurrence: None)
  Receive Date: 20110118
  Receipt Date: 20110106
  Transmission Date: 20110831
  Serious: Yes (Hospitalization)
  Sender: FDA-Public Use
  Company Number: US-ASTRAZENECA-2009UW03345

PATIENT
  Sex: Male

DRUGS (3)
  1. ATACAND [Suspect]
     Dosage: QD
     Route: 048
  2. ATACAND HCT [Suspect]
     Route: 048
  3. CRESTOR [Suspect]
     Route: 048

REACTIONS (5)
  - BRONCHITIS [None]
  - MALAISE [None]
  - INCORRECT DOSE ADMINISTERED [None]
  - DIZZINESS [None]
  - BALANCE DISORDER [None]
